FAERS Safety Report 10164211 (Version 1)
Quarter: 2014Q2

REPORT INFORMATION
  Report Type: Spontaneous
  Country: US (occurrence: US)
  Receive Date: 20140510
  Receipt Date: 20140510
  Transmission Date: 20141212
  Serious: No
  Sender: FDA-Public Use
  Company Number: US-BRISTOL-MYERS SQUIBB COMPANY-19985803

PATIENT
  Age: 62 Year
  Sex: Female
  Weight: 77.1 kg

DRUGS (2)
  1. BYETTA [Suspect]
     Indication: TYPE 2 DIABETES MELLITUS
     Dosage: USING DRUG FOR 4-5YRS
     Route: 058
  2. HUMALOG [Concomitant]

REACTIONS (1)
  - Abdominal pain [Recovered/Resolved]
